FAERS Safety Report 4659057-5 (Version None)
Quarter: 2005Q2

REPORT INFORMATION
  Report Type: 
  Country: None (occurrence: None)
  Receive Date: 20050509
  Receipt Date: 20050429
  Transmission Date: 20051028
  Serious: Yes (Other)
  Sender: FDA-Public Use
  Company Number: 2005-04-2151

PATIENT
  Age: 58 Year
  Sex: Female

DRUGS (8)
  1. INTRON A [Suspect]
     Indication: METASTATIC MALIGNANT MELANOMA
     Dosage: 9-7.5 MIU SUBCUTANEOUS
     Route: 058
     Dates: start: 20000715, end: 20010501
  2. VINBLASTINE SULFATE [Concomitant]
  3. CISPLATIN [Concomitant]
  4. ............. [Concomitant]
  5. ..... [Concomitant]
  6. ................. [Concomitant]
  7. .......... [Concomitant]
  8. .................. [Concomitant]

REACTIONS (2)
  - FIBROSIS [None]
  - SIALOADENITIS [None]
